FAERS Safety Report 26179922 (Version 1)
Quarter: 2025Q4

REPORT INFORMATION
  Report Type: Spontaneous
  Country: US (occurrence: US)
  Receive Date: 20251219
  Receipt Date: 20251219
  Transmission Date: 20260118
  Serious: Yes (Other)
  Sender: DR REDDYS
  Company Number: US-DRL-USA-USA/2025/12/019241

PATIENT
  Age: 12 Month
  Sex: Male
  Weight: 9.07 kg

DRUGS (6)
  1. SUMATRIPTAN SUCCINATE [Suspect]
     Active Substance: SUMATRIPTAN SUCCINATE
     Indication: Product used for unknown indication
     Dosage: FOR MATERNAL MIGRAINE TREATMENT
     Route: 064
     Dates: start: 2017
  2. REGLAN [Suspect]
     Active Substance: METOCLOPRAMIDE HYDROCHLORIDE
     Indication: Product used for unknown indication
     Dosage: FOR MATERNAL MIGRAINE TREATMENT
     Route: 064
  3. NURTEC ODT [Suspect]
     Active Substance: RIMEGEPANT SULFATE
     Indication: Product used for unknown indication
     Dosage: FOR MATERNAL MIGRAINE TREATMENT, STARTED IN --2022
     Route: 064
  4. RIZATRIPTAN [Suspect]
     Active Substance: RIZATRIPTAN
     Indication: Product used for unknown indication
     Dosage: FOR MATERNAL MIGRAINE TREATMENT?STARTED IN --2022
     Route: 064
  5. TYLENOL [Suspect]
     Active Substance: ACETAMINOPHEN
     Indication: Product used for unknown indication
     Dosage: 500-2000 MG??FOR MATERNAL MIGRAINE TREATMENT
     Route: 064
  6. BENADRYL [Suspect]
     Active Substance: DIPHENHYDRAMINE HYDROCHLORIDE
     Indication: Product used for unknown indication
     Dosage: FOR MATERNAL MIGRAINE TREATMENT
     Route: 064

REACTIONS (2)
  - Movement disorder [Unknown]
  - Maternal exposure during pregnancy [Unknown]

NARRATIVE: CASE EVENT DATE: 20250926
